FAERS Safety Report 16456355 (Version 1)
Quarter: 2019Q2

REPORT INFORMATION
  Report Type: Spontaneous
  Country: CA (occurrence: CA)
  Receive Date: 20190620
  Receipt Date: 20190620
  Transmission Date: 20190711
  Serious: Yes (Other)
  Sender: FDA-Public Use
  Company Number: CA-PFIZER INC-2019257944

PATIENT

DRUGS (1)
  1. LYRICA [Suspect]
     Active Substance: PREGABALIN
     Dosage: 675 MG, UNK (TAKING LYRICA FOR 7-8 YEARS)

REACTIONS (3)
  - Prescribed overdose [Unknown]
  - Angina pectoris [Unknown]
  - Cerebrovascular accident [Unknown]
